FAERS Safety Report 4332133-2 (Version None)
Quarter: 2004Q1

REPORT INFORMATION
  Report Type: 
  Country: None (occurrence: None)
  Receive Date: 20040329
  Receipt Date: 20040316
  Transmission Date: 20041129
  Serious: Yes (Death, Hospitalization)
  Sender: FDA-Public Use
  Company Number: 02100-USA-04-0130

PATIENT
  Age: 83 Year
  Sex: Female

DRUGS (1)
  1. PLETAL [Suspect]
     Dosage: 100 MG BID ORAL
     Route: 048
     Dates: start: 20040119

REACTIONS (2)
  - LEG AMPUTATION [None]
  - PROCEDURAL COMPLICATION [None]
